FAERS Safety Report 8817013 (Version 1)
Quarter: 2012Q4

REPORT INFORMATION
  Report Type: Spontaneous
  Country: US (occurrence: None)
  Receive Date: 20121002
  Receipt Date: 20121002
  Transmission Date: 20130627
  Serious: No
  Sender: FDA-Public Use
  Company Number: None

PATIENT
  Age: 52 Year
  Sex: Female

DRUGS (1)
  1. AVONEX [Suspect]
     Dosage: 30 MCG QWeek Intramuscular
     Route: 030

REACTIONS (7)
  - Fall [None]
  - Muscle contractions involuntary [None]
  - Urinary incontinence [None]
  - Pain [None]
  - Drug intolerance [None]
  - Treatment failure [None]
  - Disease progression [None]
